FAERS Safety Report 9503081 (Version 1)
Quarter: 2013Q3

REPORT INFORMATION
  Report Type: Spontaneous
  Country: US (occurrence: US)
  Receive Date: 20130906
  Receipt Date: 20130906
  Transmission Date: 20140515
  Serious: Yes (Other)
  Sender: FDA-Public Use
  Company Number: US-PFIZER INC-2013257074

PATIENT
  Age: 59 Year
  Sex: Female
  Weight: 77.1 kg

DRUGS (5)
  1. PRISTIQ [Suspect]
     Indication: ANXIETY
     Dosage: 50 MG DAILY
     Dates: start: 20130828
  2. PRISTIQ [Suspect]
     Indication: DEPRESSION
  3. SONATA [Suspect]
     Indication: INSOMNIA
     Dosage: UNK
     Dates: start: 201308, end: 201308
  4. LUNESTA [Suspect]
     Indication: INSOMNIA
     Dosage: UNK
     Dates: start: 201308, end: 201308
  5. VIIBRYD [Suspect]
     Indication: DEPRESSION
     Dosage: UNK
     Dates: start: 201308, end: 201308

REACTIONS (7)
  - Abasia [Unknown]
  - Hypersensitivity [Unknown]
  - Somnolence [Unknown]
  - Fatigue [Unknown]
  - Nausea [Unknown]
  - Vomiting [Unknown]
  - Drug ineffective [Unknown]
